FAERS Safety Report 6050020-9 (Version None)
Quarter: 2009Q1

REPORT INFORMATION
  Report Type: 
  Country: None (occurrence: None)
  Receive Date: 20090121
  Receipt Date: 20090108
  Transmission Date: 20090719
  Serious: Yes (Other)
  Sender: FDA-Public Use
  Company Number: SPV1-2009-00047

PATIENT
  Age: 10 Year
  Sex: Male
  Weight: 30.8 kg

DRUGS (2)
  1. ADDERALL 10 [Suspect]
     Indication: ATTENTION DEFICIT/HYPERACTIVITY DISORDER
     Dosage: 20 MG, 1X.DAY:QD, ORAL
     Route: 048
     Dates: start: 20080901, end: 20081101
  2. ADDERALL 10 [Suspect]
     Indication: ATTENTION DEFICIT/HYPERACTIVITY DISORDER
     Dosage: 20 MG, 1X.DAY:QD, ORAL
     Route: 048
     Dates: start: 20080901, end: 20081101

REACTIONS (5)
  - ABDOMINAL PAIN UPPER [None]
  - ANOREXIA [None]
  - FLAT AFFECT [None]
  - SOCIAL AVOIDANT BEHAVIOUR [None]
  - SUICIDAL IDEATION [None]
